FAERS Safety Report 5600600-7 (Version None)
Quarter: 2008Q1

REPORT INFORMATION
  Report Type: 
  Country: None (occurrence: None)
  Receive Date: 20080111
  Receipt Date: 20070720
  Transmission Date: 20080703
  Serious: Yes (Other)
  Sender: FDA-Public Use
  Company Number: HQWYE289421JUL04

PATIENT
  Age: 68 Year
  Sex: Female

DRUGS (1)
  1. PREMPRO (CONJUGATED ESTROGENS/MEDROXYPROGESTEREONE ACETATE, TABLET, UN [Suspect]
     Indication: HORMONE REPLACEMENT THERAPY
     Dates: start: 19971101, end: 20020601

REACTIONS (1)
  - CEREBROVASCULAR ACCIDENT [None]
